FAERS Safety Report 8020431-0 (Version None)
Quarter: 2012Q1

REPORT INFORMATION
  Report Type: 
  Country: None (occurrence: None)
  Receive Date: 20120103
  Receipt Date: 20111220
  Transmission Date: 20120608
  Serious: Yes (Life-Threatening, Other)
  Sender: FDA-Public Use
  Company Number: JP-MYLANLABS-2011S1026509

PATIENT
  Age: 6 Year
  Sex: Male

DRUGS (9)
  1. CISPLATIN [Suspect]
     Indication: RHABDOMYOSARCOMA
  2. VINCRISTINE [Suspect]
     Indication: RHABDOMYOSARCOMA
  3. THIOTEPA [Suspect]
     Indication: RHABDOMYOSARCOMA
  4. MELPHALAN HYDROCHLORIDE [Suspect]
     Indication: RHABDOMYOSARCOMA
  5. IFOSFAMIDE [Suspect]
     Indication: RHABDOMYOSARCOMA
  6. ETOPOSIDE [Suspect]
     Indication: RHABDOMYOSARCOMA
  7. PIRARUBICIN [Suspect]
     Indication: RHABDOMYOSARCOMA
  8. CYCLOPHOSPHAMIDE [Suspect]
     Indication: RHABDOMYOSARCOMA
  9. DACTINOMYCIN [Suspect]
     Indication: RHABDOMYOSARCOMA

REACTIONS (3)
  - NEOPLASM PROGRESSION [None]
  - METASTASES TO LYMPH NODES [None]
  - METASTASES TO CENTRAL NERVOUS SYSTEM [None]
